FAERS Safety Report 20648759 (Version 2)
Quarter: 2022Q2

REPORT INFORMATION
  Report Type: Spontaneous
  Country: JP (occurrence: JP)
  Receive Date: 20220329
  Receipt Date: 20220401
  Transmission Date: 20220721
  Serious: Yes (Death, Life-Threatening, Hospitalization, Other)
  Sender: FDA-Public Use
  Company Number: JP-MLMSERVICE-20220317-3442970-1

PATIENT
  Age: 58 Year
  Sex: Male
  Weight: 97.5 kg

DRUGS (3)
  1. METHYLPREDNISOLONE [Suspect]
     Active Substance: METHYLPREDNISOLONE
     Dosage: 1 G
  2. TOCILIZUMAB [Suspect]
     Active Substance: TOCILIZUMAB
     Indication: Respiratory failure
     Dosage: UNK
  3. REMDESIVIR [Concomitant]
     Active Substance: REMDESIVIR
     Indication: Respiratory failure
     Dosage: UNK

REACTIONS (15)
  - Cerebral haemorrhage [Fatal]
  - Disseminated mucormycosis [Fatal]
  - Acute kidney injury [Fatal]
  - Brain herniation [Fatal]
  - Embolism [Fatal]
  - Pulmonary infarction [Fatal]
  - Pulmonary embolism [Fatal]
  - Thromboangiitis obliterans [Fatal]
  - Hepatic function abnormal [Fatal]
  - Multiple organ dysfunction syndrome [Fatal]
  - Pancreatitis [Fatal]
  - Mucormycosis [Fatal]
  - Pulmonary haemorrhage [Fatal]
  - Renal infarct [Fatal]
  - Respiratory failure [Unknown]
